FAERS Safety Report 7112414-X (Version None)
Quarter: 2010Q4

REPORT INFORMATION
  Report Type: 
  Country: None (occurrence: None)
  Receive Date: 20101119
  Receipt Date: 20101026
  Transmission Date: 20110411
  Serious: No
  Sender: FDA-Public Use
  Company Number: A0888789A

PATIENT
  Age: 75 Year
  Sex: Male

DRUGS (6)
  1. AVODART [Suspect]
     Indication: URINE OUTPUT INCREASED
     Dosage: .5MG PER DAY
     Route: 048
     Dates: start: 20100501, end: 20100901
  2. FLOMAX [Suspect]
     Indication: URINE OUTPUT INCREASED
     Dates: end: 20101012
  3. VALIUM [Concomitant]
  4. LISINOPRIL [Concomitant]
  5. WATER PILL [Concomitant]
  6. ONE A DAY VITAMIN [Concomitant]

REACTIONS (5)
  - CHEST PAIN [None]
  - CHILLS [None]
  - FEELING ABNORMAL [None]
  - FEELING HOT [None]
  - HOT FLUSH [None]
